FAERS Safety Report 5385026-6 (Version None)
Quarter: 2007Q3

REPORT INFORMATION
  Report Type: 
  Country: None (occurrence: None)
  Receive Date: 20070706
  Receipt Date: 20070706
  Transmission Date: 20080115
  Serious: Yes (Hospitalization)
  Sender: FDA-Public Use
  Company Number: None

PATIENT
  Sex: Female
  Weight: 59.6 kg

DRUGS (3)
  1. ZORBTIVE [Suspect]
     Indication: SHORT-BOWEL SYNDROME
     Dosage: 6.0 MG QD SQ
     Route: 058
     Dates: start: 20070303, end: 20070319
  2. CATAPRES [Concomitant]
  3. REGLAN [Concomitant]

REACTIONS (4)
  - BLOOD ALKALINE PHOSPHATASE INCREASED [None]
  - NAUSEA [None]
  - PANCREATITIS ACUTE [None]
  - TROPONIN INCREASED [None]
